FAERS Safety Report 5920154-5 (Version None)
Quarter: 2008Q4

REPORT INFORMATION
  Report Type: 
  Country: None (occurrence: None)
  Receive Date: 20081016
  Receipt Date: 20081015
  Transmission Date: 20090506
  Serious: Yes (Hospitalization)
  Sender: FDA-Public Use
  Company Number: US-JNJFOC-20081003585

PATIENT
  Age: 18 Year
  Sex: Male

DRUGS (4)
  1. CONCERTA [Suspect]
     Indication: ATTENTION DEFICIT/HYPERACTIVITY DISORDER
     Route: 065
  2. LEXAPRO [Concomitant]
     Route: 065
  3. CYMBALTA [Concomitant]
     Route: 065
  4. CYMBALTA [Concomitant]
     Indication: DEPRESSION
     Route: 065

REACTIONS (1)
  - SUICIDE ATTEMPT [None]
